FAERS Safety Report 10214839 (Version 2)
Quarter: 2015Q1

REPORT INFORMATION
  Report Type: Spontaneous
  Country: JP (occurrence: JP)
  Receive Date: 20140603
  Receipt Date: 20150218
  Transmission Date: 20150720
  Serious: Yes (Death)
  Sender: FDA-Public Use
  Company Number: JP-BAYER-2014-077903

PATIENT
  Age: 72 Year
  Sex: Male
  Weight: 50 kg

DRUGS (21)
  1. PLAVIX [Interacting]
     Active Substance: CLOPIDOGREL BISULFATE
     Dosage: 300 MG, UNK
     Route: 048
     Dates: start: 20140426, end: 20140426
  2. ATARAX [Concomitant]
     Active Substance: HYDROXYZINE\HYDROXYZINE HYDROCHLORIDE
     Indication: ANXIETY DISORDER
     Dosage: DAILY DOSE 10 MG
     Route: 048
     Dates: start: 20131225, end: 20140427
  3. SOLANAX [Concomitant]
     Active Substance: ALPRAZOLAM
     Indication: RESTLESSNESS
     Dosage: DAILY DOSE .8 MG
     Route: 048
     Dates: start: 20140427
  4. BAYASPIRIN [Interacting]
     Active Substance: ASPIRIN
     Indication: THROMBOSIS PROPHYLAXIS
     Dosage: 100 MG, UNK
     Route: 048
     Dates: start: 20140427, end: 20140427
  5. PLAVIX [Interacting]
     Active Substance: CLOPIDOGREL BISULFATE
     Dosage: 75 MG, UNK
     Route: 048
     Dates: start: 20140427, end: 20140427
  6. SPIRONOLACTONE. [Concomitant]
     Active Substance: SPIRONOLACTONE
     Indication: PLEURAL EFFUSION
  7. BAYASPIRIN [Interacting]
     Active Substance: ASPIRIN
     Indication: THROMBOSIS PROPHYLAXIS
     Dosage: UNK
     Dates: end: 20140428
  8. APIXABAN [Interacting]
     Active Substance: APIXABAN
     Indication: CEREBROVASCULAR ACCIDENT PROPHYLAXIS
     Dosage: 5 MG, UNK
     Route: 048
     Dates: start: 20140427, end: 20140427
  9. APIXABAN [Interacting]
     Active Substance: APIXABAN
     Indication: CEREBROVASCULAR ACCIDENT PROPHYLAXIS
     Dosage: UNK
     Dates: end: 20140428
  10. DIART [Concomitant]
     Active Substance: AZOSEMIDE
     Indication: CARDIAC FAILURE
     Dosage: DAILY DOSE 60 MG
     Route: 048
     Dates: start: 20120517
  11. BAYASPIRIN [Suspect]
     Active Substance: ASPIRIN
     Indication: THROMBOSIS PROPHYLAXIS
     Dosage: 300 MG, UNK
     Route: 048
     Dates: start: 20140426, end: 20140426
  12. PLAVIX [Interacting]
     Active Substance: CLOPIDOGREL BISULFATE
     Dosage: UNK
     Dates: end: 20140428
  13. DIART [Concomitant]
     Active Substance: AZOSEMIDE
     Indication: PLEURAL EFFUSION
  14. SPIRONOLACTONE. [Concomitant]
     Active Substance: SPIRONOLACTONE
     Indication: CARDIAC FAILURE
     Dosage: DAILY DOSE 25 MG
     Route: 048
     Dates: start: 20120517
  15. APIXABAN [Interacting]
     Active Substance: APIXABAN
     Indication: CEREBROVASCULAR ACCIDENT PROPHYLAXIS
     Dosage: 5 MG, UNK
     Route: 048
     Dates: start: 20140426, end: 20140426
  16. APIXABAN [Interacting]
     Active Substance: APIXABAN
     Indication: CEREBROVASCULAR ACCIDENT PROPHYLAXIS
     Dosage: 5 MG, UNK
     Route: 048
     Dates: start: 20140427, end: 20140427
  17. MAGMITT [Concomitant]
     Active Substance: MAGNESIUM OXIDE
     Indication: CONSTIPATION
     Dosage: DAILY DOSE 500 MG
     Route: 048
     Dates: start: 20110901
  18. SIGMART [Concomitant]
     Active Substance: NICORANDIL
     Indication: ACUTE CORONARY SYNDROME
     Dosage: 24 MG (2ML/H)
     Route: 041
     Dates: start: 20140425
  19. SEISHOKU [Concomitant]
     Active Substance: SODIUM CHLORIDE
     Indication: ACUTE CORONARY SYNDROME
     Dosage: 50 ML (2ML/H)
     Route: 041
     Dates: start: 20140425
  20. APIXABAN [Interacting]
     Active Substance: APIXABAN
     Indication: CEREBROVASCULAR ACCIDENT PROPHYLAXIS
     Dosage: 5 MG, UNK
     Route: 048
     Dates: start: 20140426, end: 20140426
  21. SENNOSIDE [Concomitant]
     Active Substance: SENNOSIDES
     Indication: CONSTIPATION
     Dosage: DAILY DOSE 24 MG
     Route: 048
     Dates: start: 20130725

REACTIONS (4)
  - Labelled drug-drug interaction medication error [None]
  - Cerebral haemorrhage [Fatal]
  - Mouth haemorrhage [None]
  - Pulmonary haemorrhage [Fatal]

NARRATIVE: CASE EVENT DATE: 20140426
